FAERS Safety Report 12666943 (Version 3)
Quarter: 2016Q4

REPORT INFORMATION
  Report Type: Spontaneous
  Country: CN (occurrence: CN)
  Receive Date: 20160819
  Receipt Date: 20161223
  Transmission Date: 20170207
  Serious: Yes (Other)
  Sender: FDA-Public Use
  Company Number: CN-009507513-1608CHN009236

PATIENT
  Age: 39 Year
  Sex: Female

DRUGS (1)
  1. IMPLANON [Suspect]
     Active Substance: ETONOGESTREL
     Indication: CONTRACEPTION
     Dosage: 1 DF, UNK
     Route: 059
     Dates: start: 20141201

REACTIONS (4)
  - Pregnancy on contraceptive [Recovered/Resolved]
  - Abortion missed [Unknown]
  - Complication associated with device [Not Recovered/Not Resolved]
  - Unintended pregnancy [Recovered/Resolved]

NARRATIVE: CASE EVENT DATE: 201604
